FAERS Safety Report 8984951 (Version 3)
Quarter: 2013Q1

REPORT INFORMATION
  Report Type: Spontaneous
  Country: US (occurrence: US)
  Receive Date: 20121226
  Receipt Date: 20130108
  Transmission Date: 20140127
  Serious: No
  Sender: FDA-Public Use
  Company Number: US-PFIZER INC-2012326025

PATIENT
  Age: 70 Year
  Sex: Female

DRUGS (2)
  1. ALDACTONE [Suspect]
     Dosage: 100 MG, UNK
  2. LYRICA [Suspect]
     Dosage: 100 MG, UNK

REACTIONS (1)
  - Malaise [Unknown]
